FAERS Safety Report 22140605 (Version 1)
Quarter: 2023Q1

REPORT INFORMATION
  Report Type: Spontaneous
  Country: CN (occurrence: None)
  Receive Date: 20230327
  Receipt Date: 20230327
  Transmission Date: 20230418
  Serious: Yes (Hospitalization)
  Sender: FDA-Public Use
  Company Number: CN-ROCHE-3316430

PATIENT
  Age: 80 Year
  Sex: Female
  Weight: 62 kg

DRUGS (7)
  1. HERCEPTIN [Suspect]
     Active Substance: TRASTUZUMAB
     Indication: Breast cancer
     Dosage: FORM OF ADMIN TEXT : INJECTION
     Route: 041
     Dates: start: 20230316, end: 20230316
  2. SODIUM CHLORIDE [Concomitant]
     Active Substance: SODIUM CHLORIDE
  3. DEXAMETHASONE SODIUM PHOSPHATE [Concomitant]
     Active Substance: DEXAMETHASONE SODIUM PHOSPHATE
  4. PROMETHAZINE HYDROCHLORIDE [Concomitant]
     Active Substance: PROMETHAZINE HYDROCHLORIDE
  5. BUPLEURUM [Concomitant]
  6. COMPOUND AMINOPYRINE [Concomitant]
  7. BARBITAL [Concomitant]
     Active Substance: BARBITAL

REACTIONS (3)
  - Chills [Recovering/Resolving]
  - Tachypnoea [Recovering/Resolving]
  - Body temperature increased [Recovered/Resolved]

NARRATIVE: CASE EVENT DATE: 20230316
